FAERS Safety Report 17153681 (Version 1)
Quarter: 2019Q4

REPORT INFORMATION
  Report Type: Spontaneous
  Country: US (occurrence: US)
  Receive Date: 20191213
  Receipt Date: 20191213
  Transmission Date: 20200122
  Serious: No
  Sender: FDA-Public Use
  Company Number: US-ENDO PHARMACEUTICALS INC-2018-042935

PATIENT
  Age: 69 Year
  Sex: Male
  Weight: 79.37 kg

DRUGS (1)
  1. TESTIM [Suspect]
     Active Substance: TESTOSTERONE
     Indication: ANDROGEN DEFICIENCY
     Dosage: 50 MG, ONE TUBE DAILY
     Route: 062
     Dates: start: 201810

REACTIONS (4)
  - Feeling abnormal [Unknown]
  - Product dose omission [Unknown]
  - Product odour abnormal [Not Recovered/Not Resolved]
  - Blood testosterone decreased [Unknown]

NARRATIVE: CASE EVENT DATE: 201810
